FAERS Safety Report 20047394 (Version 1)
Quarter: 2021Q4

REPORT INFORMATION
  Report Type: Spontaneous
  Country: CA (occurrence: CA)
  Receive Date: 20211109
  Receipt Date: 20211109
  Transmission Date: 20220304
  Serious: Yes (Life-Threatening, Other)
  Sender: FDA-Public Use
  Company Number: CA-GLAXOSMITHKLINE-CA2021AMR230046

PATIENT
  Sex: Female
  Weight: 58.06 kg

DRUGS (9)
  1. VALTREX [Suspect]
     Active Substance: VALACYCLOVIR HYDROCHLORIDE
     Indication: Prophylaxis
     Dosage: UNK
  2. KEFLEX [Suspect]
     Active Substance: CEPHALEXIN
     Indication: Prophylaxis
     Dosage: UNK
  3. EFFEXOR [Suspect]
     Active Substance: VENLAFAXINE HYDROCHLORIDE
     Indication: Product used for unknown indication
     Dosage: UNK
  4. CLONAZEPAM [Suspect]
     Active Substance: CLONAZEPAM
     Indication: Product used for unknown indication
     Dosage: UNK
  5. MEASLES-MUMPS-RUBELLA VIRUS VACCINE [Suspect]
     Active Substance: MEASLES-MUMPS-RUBELLA VIRUS VACCINE
     Indication: Prophylaxis
     Dosage: UNK
  6. PFIZER-BIONTECH COVID-19 VACCINE [Suspect]
     Active Substance: TOZINAMERAN
     Indication: Prophylaxis
     Dosage: UNK
  7. ZOLOFT [Suspect]
     Active Substance: SERTRALINE HYDROCHLORIDE
     Indication: Product used for unknown indication
     Dosage: 200 MG
  8. ADACEL TDAP [Suspect]
     Active Substance: TETANUS TOXOID, REDUCED DIPHTHERIA TOXOID AND ACELLULAR PERTUSSIS VACCINE ADSORBED, TDAP
     Indication: Product used for unknown indication
     Dosage: UNK
  9. PRIORIX [Suspect]
     Active Substance: MEASLES-MUMPS-RUBELLA VIRUS VACCINE
     Indication: Product used for unknown indication
     Dosage: UNK

REACTIONS (13)
  - Suicide attempt [Unknown]
  - Alcohol poisoning [Unknown]
  - Measles [Unknown]
  - Vertigo [Unknown]
  - Depression [Unknown]
  - Balance disorder [Unknown]
  - Decreased appetite [Unknown]
  - Cough [Unknown]
  - Inner ear disorder [Unknown]
  - Tinnitus [Unknown]
  - Pyrexia [Unknown]
  - Illness [Not Recovered/Not Resolved]
  - Scar [Unknown]

NARRATIVE: CASE EVENT DATE: 20190101
